FAERS Safety Report 10884436 (Version 1)
Quarter: 2015Q1

REPORT INFORMATION
  Report Type: Spontaneous
  Country: TR (occurrence: TR)
  Receive Date: 20150304
  Receipt Date: 20150304
  Transmission Date: 20150721
  Serious: Yes (Death)
  Sender: FDA-Public Use
  Company Number: TR-JNJFOC-20150211840

PATIENT
  Age: 14 Year
  Sex: Female

DRUGS (1)
  1. FENTANYL. [Suspect]
     Active Substance: FENTANYL
     Indication: NECK PAIN
     Route: 062
     Dates: start: 20150216

REACTIONS (6)
  - Drug diversion [Fatal]
  - Off label use [Fatal]
  - Respiratory arrest [Fatal]
  - Myocardial infarction [Fatal]
  - Overdose [Fatal]
  - Drug administration error [Fatal]

NARRATIVE: CASE EVENT DATE: 20150216
